FAERS Safety Report 15702424 (Version 6)
Quarter: 2021Q4

REPORT INFORMATION
  Report Type: Report from Study
  Country: AU (occurrence: None)
  Receive Date: 20181210
  Receipt Date: 20211210
  Transmission Date: 20220303
  Serious: Yes (Hospitalization)
  Sender: FDA-Public Use
  Company Number: AU-ROCHE-2223692

PATIENT
  Age: 49 Year
  Sex: Female
  Weight: 93.9 kg

DRUGS (21)
  1. ATEZOLIZUMAB [Suspect]
     Active Substance: ATEZOLIZUMAB
     Indication: Colorectal cancer
     Dosage: ON 26/NOV/2018, RECEIVED MOST RECENT DOSE OF ATEZOLIZUMAB 265 ML.
     Route: 041
     Dates: start: 20181105, end: 20181126
  2. TALIMOGENE LAHERPAREPVEC [Suspect]
     Active Substance: TALIMOGENE LAHERPAREPVEC
     Indication: Colorectal cancer
     Dosage: ON 27/NOV/2018, RECEIVED MOST RECENT DOSE OF TALIMOGENE LAHERPAREPVEC 4ML
     Route: 026
     Dates: start: 20181106, end: 20181127
  3. LEVOTHYROXINE [Concomitant]
     Active Substance: LEVOTHYROXINE
     Indication: Hypothyroidism
     Route: 048
     Dates: start: 2001
  4. IRBESARTAN [Concomitant]
     Active Substance: IRBESARTAN
     Indication: Hypertension
     Dosage: 300/12.5
     Route: 048
     Dates: start: 1999
  5. PANTOPRAZOLE [Concomitant]
     Active Substance: PANTOPRAZOLE
     Route: 048
     Dates: start: 20180919, end: 20181029
  6. ACETAMINOPHEN [Concomitant]
     Active Substance: ACETAMINOPHEN
     Indication: Pain
     Route: 048
     Dates: start: 20180919, end: 20181105
  7. ACETAMINOPHEN [Concomitant]
     Active Substance: ACETAMINOPHEN
     Indication: Hepatic pain
     Route: 048
     Dates: start: 20181106, end: 20181109
  8. ACETAMINOPHEN [Concomitant]
     Active Substance: ACETAMINOPHEN
     Route: 048
     Dates: start: 20181127, end: 20181224
  9. FENTANYL [Concomitant]
     Active Substance: FENTANYL
     Indication: Hepatic pain
     Route: 042
     Dates: start: 20181106, end: 20181108
  10. FENTANYL [Concomitant]
     Active Substance: FENTANYL
     Route: 042
     Dates: start: 20181127, end: 20181127
  11. OXYCODONE [Concomitant]
     Active Substance: OXYCODONE
     Indication: Hepatic pain
     Route: 048
     Dates: start: 20181107, end: 20181108
  12. OXYCODONE [Concomitant]
     Active Substance: OXYCODONE
     Route: 048
     Dates: start: 20181107, end: 20181108
  13. AMOXICILLIN\CLAVULANIC ACID [Concomitant]
     Active Substance: AMOXICILLIN\CLAVULANIC ACID
     Indication: Cytokine release syndrome
     Dosage: 875/125: 1 TAB
     Route: 048
     Dates: start: 20181108, end: 20181113
  14. LEUCOVORIN CALCIUM [Concomitant]
     Active Substance: LEUCOVORIN CALCIUM
     Indication: Colorectal cancer stage IV
     Dates: start: 20170111, end: 20170114
  15. LEUCOVORIN CALCIUM [Concomitant]
     Active Substance: LEUCOVORIN CALCIUM
     Dates: start: 20180320, end: 20180821
  16. OXYCONTIN [Concomitant]
     Active Substance: OXYCODONE HYDROCHLORIDE
     Indication: Hepatic pain
     Route: 048
     Dates: start: 20181127, end: 20181128
  17. POTASSIUM [Concomitant]
     Active Substance: POTASSIUM
     Indication: Hypokalaemia
     Route: 042
     Dates: start: 20181127, end: 20181128
  18. POTASSIUM [Concomitant]
     Active Substance: POTASSIUM
     Dates: start: 20181129, end: 20181130
  19. MAGNESIUM [Concomitant]
     Active Substance: MAGNESIUM
     Indication: Hypomagnesaemia
     Route: 042
     Dates: start: 20181127, end: 20181128
  20. MAGNESIUM [Concomitant]
     Active Substance: MAGNESIUM
     Route: 048
     Dates: start: 20181129
  21. IBUPROFEN [Concomitant]
     Active Substance: IBUPROFEN
     Indication: Hepatic pain
     Route: 048
     Dates: start: 20181130, end: 20181202

REACTIONS (2)
  - Electrocardiogram QT prolonged [Recovered/Resolved]
  - Cytokine release syndrome [Recovered/Resolved]

NARRATIVE: CASE EVENT DATE: 20181127
